FAERS Safety Report 24611385 (Version 2)
Quarter: 2025Q2

REPORT INFORMATION
  Report Type: Report from Study
  Country: US (occurrence: US)
  Receive Date: 20241113
  Receipt Date: 20250604
  Transmission Date: 20250717
  Serious: Yes (Other)
  Sender: UCB
  Company Number: US-UCBSA-2024057859

PATIENT
  Sex: Female
  Weight: 15.9 kg

DRUGS (1)
  1. FINTEPLA [Suspect]
     Active Substance: FENFLURAMINE
     Indication: Product used for unknown indication
     Dates: start: 20240425

REACTIONS (3)
  - Pericardial effusion [Unknown]
  - Left-to-right cardiac shunt [Unknown]
  - Atrial septal defect [Unknown]

NARRATIVE: CASE EVENT DATE: 20240101
